FAERS Safety Report 4279096-6 (Version None)
Quarter: 2004Q1

REPORT INFORMATION
  Report Type: 
  Country: None (occurrence: None)
  Receive Date: 20040127
  Receipt Date: 20040115
  Transmission Date: 20041129
  Serious: Yes (Other)
  Sender: FDA-Public Use
  Company Number: US-BRISTOL-MYERS SQUIBB COMPANY-12479192

PATIENT
  Sex: Female

DRUGS (1)
  1. SERZONE [Suspect]
     Route: 048
     Dates: start: 19970101, end: 19980101

REACTIONS (2)
  - HEPATIC FUNCTION ABNORMAL [None]
  - HEPATOMEGALY [None]
